FAERS Safety Report 24153420 (Version 2)
Quarter: 2024Q3

REPORT INFORMATION
  Report Type: Spontaneous
  Country: DE (occurrence: DE)
  Receive Date: 20240730
  Receipt Date: 20240829
  Transmission Date: 20241017
  Serious: Yes (Other)
  Sender: DR REDDYS
  Company Number: None

PATIENT
  Age: 44 Year
  Sex: Male

DRUGS (14)
  1. MORPHINE [Suspect]
     Active Substance: MORPHINE
     Indication: Product used for unknown indication
     Dosage: UNK
     Route: 065
  2. FENTANYL [Suspect]
     Active Substance: FENTANYL\FENTANYL CITRATE
     Indication: Product used for unknown indication
     Dosage: UNK
  3. PREGABALIN [Suspect]
     Active Substance: PREGABALIN
     Indication: Product used for unknown indication
     Dosage: UNK
     Route: 065
  4. NORBUPRENORPHINE [Suspect]
     Active Substance: NORBUPRENORPHINE
     Indication: Product used for unknown indication
     Dosage: UNK
     Route: 065
  5. DRONABINOL [Suspect]
     Active Substance: DRONABINOL
     Indication: Product used for unknown indication
     Dosage: UNK
  6. NORFENTANYL [Suspect]
     Active Substance: NORFENTANYL
     Indication: Product used for unknown indication
     Dosage: UNK
  7. NORDAZEPAM [Suspect]
     Active Substance: NORDAZEPAM
     Indication: Product used for unknown indication
     Dosage: UNK
  8. CODEINE [Suspect]
     Active Substance: CODEINE
     Indication: Product used for unknown indication
     Dosage: UNK
  9. CODEINE [Suspect]
     Active Substance: CODEINE
     Dosage: UNK
     Route: 065
  10. LORAZEPAM [Suspect]
     Active Substance: LORAZEPAM
     Indication: Product used for unknown indication
     Dosage: UNK
     Route: 065
  11. 7-AMINOCLONAZEPAM [Suspect]
     Active Substance: 7-AMINOCLONAZEPAM
     Indication: Product used for unknown indication
     Dosage: UNK
     Route: 065
  12. METHYLPHENIDATE HYDROCHLORIDE [Suspect]
     Active Substance: METHYLPHENIDATE HYDROCHLORIDE
     Indication: Product used for unknown indication
     Dosage: UNK
     Route: 065
  13. AMPHETAMINE ADIPATE [Suspect]
     Active Substance: AMPHETAMINE ADIPATE
     Indication: Product used for unknown indication
     Dosage: UNK
     Route: 065
  14. ALCOHOL [Suspect]
     Active Substance: ALCOHOL
     Indication: Product used for unknown indication
     Dosage: UNK
     Route: 065

REACTIONS (8)
  - Substance abuse [Unknown]
  - Bradykinesia [Unknown]
  - Lethargy [Unknown]
  - Impaired driving ability [Unknown]
  - Abnormal behaviour [Unknown]
  - Somnolence [Unknown]
  - Panic reaction [Unknown]
  - Aggression [Unknown]
